FAERS Safety Report 9767961 (Version 1)
Quarter: 2013Q4

REPORT INFORMATION
  Report Type: Spontaneous
  Country: ZA (occurrence: ZA)
  Receive Date: 20131217
  Receipt Date: 20131217
  Transmission Date: 20140711
  Serious: Yes (Other)
  Sender: FDA-Public Use
  Company Number: ZA-BAYER-2013-149828

PATIENT
  Sex: Female

DRUGS (1)
  1. CANESTEN DUOPAK 1 VT + 10 G TOPICAL CREAM [Suspect]
     Indication: CANDIDA INFECTION
     Dosage: UNK, ONCE
     Route: 067

REACTIONS (2)
  - Abortion spontaneous [None]
  - Maternal exposure during pregnancy [None]
